FAERS Safety Report 4388176-6 (Version None)
Quarter: 2004Q2

REPORT INFORMATION
  Report Type: 
  Country: None (occurrence: None)
  Receive Date: 20040625
  Receipt Date: 20040622
  Transmission Date: 20050107
  Serious: Yes (Other)
  Sender: FDA-Public Use
  Company Number: TMDP-PR-0406S-0047

PATIENT
  Age: 63 Year
  Sex: Female

DRUGS (6)
  1. TECHNETIUM TC99M MEDRONATE INJECTION (TECHNETIUM TC99M MEDRONATE) [Suspect]
     Indication: BACK PAIN
     Dosage: 1091.5 MBQ, SINGLE DOSE, I.V.
     Route: 042
     Dates: start: 20040622, end: 20040622
  2. TECHNETIUM (TC99M) GENERATOR (MALLINCKRODT) [Concomitant]
  3. ASTHMA INHALER [Concomitant]
  4. LOSARTAN (HYZAAR) [Concomitant]
  5. SYNTHROID [Concomitant]
  6. IMDUR [Concomitant]

REACTIONS (6)
  - CONTRAST MEDIA REACTION [None]
  - DYSPHAGIA [None]
  - DYSPNOEA [None]
  - PRURITUS [None]
  - SWOLLEN TONGUE [None]
  - URTICARIA [None]
